FAERS Safety Report 21875763 (Version 1)
Quarter: 2023Q1

REPORT INFORMATION
  Report Type: Spontaneous
  Country: US (occurrence: US)
  Receive Date: 20230118
  Receipt Date: 20230118
  Transmission Date: 20230417
  Serious: No
  Sender: FDA-Public Use
  Company Number: US-GSKCCFUS-Case-01599193_AE-90363

PATIENT
  Sex: Female

DRUGS (1)
  1. KRINTAFEL [Suspect]
     Active Substance: TAFENOQUINE SUCCINATE
     Indication: Product used for unknown indication
     Dosage: 150 MCG/MG SINGLE
     Route: 048
     Dates: start: 20221219

REACTIONS (1)
  - Off label use [Unknown]
